FAERS Safety Report 5464668-3 (Version None)
Quarter: 2007Q3

REPORT INFORMATION
  Report Type: 
  Country: None (occurrence: None)
  Receive Date: 20070921
  Receipt Date: 20070918
  Transmission Date: 20080115
  Serious: Yes (Life-Threatening, Hospitalization, Other)
  Sender: FDA-Public Use
  Company Number: ZA-ABBOTT-07P-143-0417387-00

PATIENT
  Age: 4 Month

DRUGS (31)
  1. RITONAVIR [Suspect]
     Indication: HIV INFECTION
     Dosage: NOT REPORTED
  2. RITONAVIR [Suspect]
     Dosage: NOT REPORTED
  3. RIFAMPICIN [Suspect]
     Indication: TUBERCULOSIS
     Dosage: NOT REPORTED
  4. RIFAMPICIN [Suspect]
     Dosage: NOT REPORTED
  5. RIFAMPICIN [Suspect]
     Dosage: NOT REPORTED
  6. DIDANOSINE [Suspect]
     Indication: HIV INFECTION
     Dosage: NOT REPORTED
  7. DIDANOSINE [Suspect]
     Dosage: NOT REPORTED
  8. STAVUDINE [Suspect]
     Indication: HIV INFECTION
     Dosage: NOT REPORTED
  9. STAVUDINE [Suspect]
     Dosage: NOT REPORTED
  10. ISONIAZID [Suspect]
     Indication: TUBERCULOSIS
     Dosage: NOT REPORTED
  11. ISONIAZID [Suspect]
     Dosage: NOT REPORTED
  12. ISONIAZID [Suspect]
     Dosage: NOT REPORTED
  13. PYRAZINAMIDE [Suspect]
     Indication: TUBERCULOSIS
     Dosage: NOT REPORTED
  14. PYRAZINAMIDE [Suspect]
     Dosage: NOT REPORTED
  15. PYRAZINAMIDE [Suspect]
     Dosage: NOT REPORTED
  16. ETHAMBUTOL [Suspect]
     Indication: TUBERCULOSIS
     Dosage: NOT REPORTED
  17. ETHAMBUTOL [Suspect]
     Dosage: NOT REPORTED
  18. ETHIONAMIDE [Suspect]
     Indication: TUBERCULOSIS
     Dosage: NOT REPORTED
  19. ETHIONAMIDE [Suspect]
     Dosage: NOT REPORTED
  20. ETHIONAMIDE [Suspect]
     Dosage: NOT REPORTED
  21. CO-TRIMOXAZOLE [Concomitant]
     Indication: PROPHYLAXIS
     Dosage: NOT REPORTED
  22. CO-TRIMOXAZOLE [Concomitant]
     Indication: PULMONARY HYPERTENSION
  23. CO-TRIMOXAZOLE [Concomitant]
     Indication: PNEUMOCYSTIS JIROVECI PNEUMONIA
  24. CEFUROXIME [Concomitant]
     Indication: PNEUMONIA BACTERIAL
     Route: 042
  25. HYDROCHLOROTHIAZIDE [Concomitant]
     Indication: PULMONARY HYPERTENSION
  26. AMPHOTERICIN B [Concomitant]
     Indication: ESCHERICHIA INFECTION
     Dosage: NOT REPORTED
  27. OFLOXACIN [Concomitant]
     Indication: TUBERCULOSIS
     Dosage: NOT REPORTED
  28. TERIZIDONE [Concomitant]
     Indication: TUBERCULOSIS
     Dosage: NOT REPORTED
  29. HEPARIN SODIUM [Concomitant]
     Indication: ANTICOAGULANT THERAPY
     Dosage: NOT REPORTED
  30. WARFARIN SODIUM [Concomitant]
     Indication: ANTICOAGULANT THERAPY
     Dosage: NOT REPORTED
  31. AMIKACIN [Concomitant]
     Indication: TUBERCULOSIS
     Dosage: NOT REPORTED

REACTIONS (4)
  - HEPATITIS [None]
  - IMMUNE RECONSTITUTION SYNDROME [None]
  - LYMPHADENITIS [None]
  - TUBERCULOSIS [None]
